FAERS Safety Report 9638241 (Version 2)
Quarter: 2013Q4

REPORT INFORMATION
  Report Type: Spontaneous
  Country: US (occurrence: US)
  Receive Date: 20131022
  Receipt Date: 20131118
  Transmission Date: 20140711
  Serious: Yes (Hospitalization)
  Sender: FDA-Public Use
  Company Number: US-B.I. PHARMACEUTICALS,INC./RIDGEFIELD-2013-BI-32679BP

PATIENT
  Sex: Male

DRUGS (3)
  1. JENTADUETO [Suspect]
     Indication: DIABETES MELLITUS INADEQUATE CONTROL
     Dosage: STRENGTH: 2.5 MG / 1000 MG; DAILY DOSE: 2.5 MG / 1000 MG
     Route: 048
     Dates: start: 201308, end: 20131008
  2. JENTADUETO [Suspect]
     Indication: TYPE 2 DIABETES MELLITUS
     Dosage: STRENGTH: 2.5 MG / 1000 MG; DAILY DOSE: 5 MG / 2000 MG
     Route: 048
     Dates: start: 20131009
  3. AGGRENOX [Suspect]
     Indication: CEREBROVASCULAR ACCIDENT PROPHYLAXIS
     Dosage: STRENGTH: 25 MG / 200 MG; DAILY DOSE: 50 MG / 400 MG
     Route: 048
     Dates: start: 201308, end: 20131008

REACTIONS (2)
  - Myocardial infarction [Recovered/Resolved]
  - Blood glucose increased [Recovered/Resolved]
